FAERS Safety Report 6656125-3 (Version None)
Quarter: 2010Q1

REPORT INFORMATION
  Report Type: 
  Country: None (occurrence: None)
  Receive Date: 20100329
  Receipt Date: 20100322
  Transmission Date: 20100710
  Serious: Yes (Hospitalization)
  Sender: FDA-Public Use
  Company Number: B0643429A

PATIENT
  Sex: Female

DRUGS (9)
  1. ALKERAN [Suspect]
     Indication: CHEMOTHERAPY
     Dosage: 160MG PER DAY
     Route: 042
     Dates: start: 20100202, end: 20100203
  2. DILTIAZEM HCL [Concomitant]
  3. ALOXI [Concomitant]
     Route: 042
     Dates: start: 20100202, end: 20100204
  4. DECADRON [Concomitant]
     Dosage: 8MG PER DAY
     Route: 042
     Dates: start: 20100202, end: 20100203
  5. ZOVIRAX [Concomitant]
     Dosage: 1200MG PER DAY
     Route: 048
  6. ZEFFIX [Concomitant]
     Dosage: 100MG PER DAY
     Route: 048
  7. VASERETIC [Concomitant]
     Dosage: 32.5MG PER DAY
     Route: 048
  8. PERIDON [Concomitant]
     Route: 048
  9. DURAGESIC-100 [Concomitant]
     Route: 062

REACTIONS (3)
  - MUCOSAL INFLAMMATION [None]
  - PNEUMONIA [None]
  - PYREXIA [None]
